FAERS Safety Report 4526253-7 (Version None)
Quarter: 2004Q4

REPORT INFORMATION
  Report Type: 
  Country: None (occurrence: None)
  Receive Date: 20041213
  Receipt Date: 20041129
  Transmission Date: 20050328
  Serious: Yes (Hospitalization)
  Sender: FDA-Public Use
  Company Number: 2004099825

PATIENT
  Age: 19 Year
  Sex: Male

DRUGS (1)
  1. DEXTROMETHORPHAN/PARACETAMOL/PSEUDOEPHEDRINNE (PARACETAMOL, PSEUDOEPHE [Suspect]
     Indication: UPPER RESPIRATORY TRACT INFECTION
     Dosage: 4 TABS TWICE IN 3 HOURS, ORAL
     Route: 048

REACTIONS (6)
  - ARTERIOSPASM CORONARY [None]
  - EJECTION FRACTION DECREASED [None]
  - ELECTROCARDIOGRAM ST SEGMENT ELEVATION [None]
  - HEART RATE INCREASED [None]
  - MYOCARDIAL INFARCTION [None]
  - VENTRICULAR HYPOKINESIA [None]
